FAERS Safety Report 6928344-X (Version None)
Quarter: 2010Q3

REPORT INFORMATION
  Report Type: 
  Country: None (occurrence: None)
  Receive Date: 20100817
  Receipt Date: 20100805
  Transmission Date: 20110219
  Serious: Yes (Other)
  Sender: FDA-Public Use
  Company Number: US-BAYER-201030286NA

PATIENT
  Age: 62 Year
  Sex: Male
  Weight: 103 kg

DRUGS (4)
  1. MAGNEVIST [Suspect]
     Indication: NUCLEAR MAGNETIC RESONANCE IMAGING BRAIN
     Dosage: AS USED: 10 ML
     Dates: start: 20060117, end: 20060117
  2. OMNISCAN [Suspect]
     Indication: NUCLEAR MAGNETIC RESONANCE IMAGING
     Dosage: AS USED: 55 ML
     Dates: start: 20041109, end: 20041109
  3. UNKNOWN GBCA [Suspect]
     Indication: CATHETERISATION CARDIAC
     Dates: start: 20020101, end: 20020101
  4. UNKNOWN GBCA [Suspect]
     Dates: start: 20040101, end: 20040101

REACTIONS (15)
  - BURNING SENSATION [None]
  - DRY SKIN [None]
  - ERYTHEMA [None]
  - EXFOLIATIVE RASH [None]
  - HYPOAESTHESIA [None]
  - NEPHROGENIC SYSTEMIC FIBROSIS [None]
  - OEDEMA PERIPHERAL [None]
  - PAIN IN EXTREMITY [None]
  - RASH [None]
  - RASH PRURITIC [None]
  - SKIN ATROPHY [None]
  - SKIN DISORDER [None]
  - SKIN FIBROSIS [None]
  - SKIN INDURATION [None]
  - SKIN LESION [None]
